FAERS Safety Report 17723980 (Version 1)
Quarter: 2020Q2

REPORT INFORMATION
  Report Type: Spontaneous
  Country: CH (occurrence: CH)
  Receive Date: 20200429
  Receipt Date: 20200429
  Transmission Date: 20200714
  Serious: Yes (Hospitalization)
  Sender: FDA-Public Use
  Company Number: NVSC2020CH109789

PATIENT
  Age: 67 Year
  Sex: Male

DRUGS (12)
  1. TRILEPTAL [Suspect]
     Active Substance: OXCARBAZEPINE
     Indication: TRIGEMINAL NEURALGIA
     Dosage: 300 MG, QD
     Route: 065
     Dates: start: 2016, end: 20200311
  2. TRILEPTAL [Interacting]
     Active Substance: OXCARBAZEPINE
     Dosage: 450 MG, QD
     Route: 065
     Dates: start: 20200312, end: 20200325
  3. TRILEPTAL [Interacting]
     Active Substance: OXCARBAZEPINE
     Dosage: 300 MG, QD
     Route: 065
     Dates: start: 20200401, end: 20200408
  4. ASS CARDIO [Concomitant]
     Active Substance: ASPIRIN
     Indication: PRODUCT USED FOR UNKNOWN INDICATION
     Dosage: UNK UKN
     Route: 065
  5. ALDACTONE [Concomitant]
     Active Substance: SPIRONOLACTONE
     Dosage: 25 MG
     Route: 065
     Dates: start: 20200401
  6. ENTRESTO [Concomitant]
     Active Substance: SACUBITRIL\VALSARTAN
     Indication: PRODUCT USED FOR UNKNOWN INDICATION
     Route: 065
  7. TRILEPTAL [Interacting]
     Active Substance: OXCARBAZEPINE
     Dosage: 450 MG, QD
     Route: 065
     Dates: start: 20200331, end: 20200331
  8. TRILEPTAL [Interacting]
     Active Substance: OXCARBAZEPINE
     Dosage: 1050 MG, QD
     Route: 065
     Dates: start: 20200326, end: 20200326
  9. TOREM [Interacting]
     Active Substance: TORSEMIDE
     Indication: PRODUCT USED FOR UNKNOWN INDICATION
     Dosage: 30 MG, QD
     Route: 065
     Dates: start: 201911, end: 20200328
  10. TRILEPTAL [Interacting]
     Active Substance: OXCARBAZEPINE
     Dosage: 750 MG, QD
     Route: 065
     Dates: start: 20200327, end: 20200330
  11. CARVEDILOL. [Concomitant]
     Active Substance: CARVEDILOL
     Indication: PRODUCT USED FOR UNKNOWN INDICATION
     Dosage: UNK UKN
     Route: 065
  12. ALDACTONE [Concomitant]
     Active Substance: SPIRONOLACTONE
     Indication: PRODUCT USED FOR UNKNOWN INDICATION
     Dosage: 25 MG, QD
     Route: 065
     Dates: end: 20200331

REACTIONS (4)
  - Off label use [Recovered/Resolved]
  - Hyponatraemia [Recovered/Resolved]
  - Drug interaction [Recovered/Resolved]
  - Inappropriate antidiuretic hormone secretion [Recovered/Resolved]

NARRATIVE: CASE EVENT DATE: 2016
